FAERS Safety Report 8903975 (Version 5)
Quarter: 2013Q3

REPORT INFORMATION
  Report Type: Report from Study
  Country: CA (occurrence: CA)
  Receive Date: 20121113
  Receipt Date: 20130710
  Transmission Date: 20140515
  Serious: Yes (Other)
  Sender: FDA-Public Use
  Company Number: PHHY2012CA080774

PATIENT
  Age: 60 Year
  Sex: Male

DRUGS (9)
  1. EXJADE [Suspect]
     Indication: THALASSAEMIA
     Dosage: UNK UKN, UNK
     Route: 048
     Dates: start: 2010, end: 201110
  2. EXJADE [Suspect]
     Dosage: 300 MG, UNK
  3. EXJADE [Suspect]
     Dosage: 2000 MG, UNK
     Route: 048
     Dates: start: 201203
  4. EXJADE [Suspect]
     Dosage: 1500 MG, QD
     Route: 048
  5. VITAMIN A AND D [Concomitant]
  6. SYNTHROID [Concomitant]
     Dosage: 0.137 MG, UNK
  7. CALCIUM [Concomitant]
     Dosage: UNK UKN, UNK
  8. THYROID [Concomitant]
     Dosage: UNK UKN, UNK
  9. DILANTIN                                /AUS/ [Concomitant]
     Dosage: UNK UKN, UNK

REACTIONS (14)
  - Food poisoning [Unknown]
  - Diarrhoea [Unknown]
  - Nausea [Unknown]
  - Abdominal discomfort [Unknown]
  - Vomiting [Unknown]
  - Blood iron increased [Unknown]
  - Joint swelling [Unknown]
  - Pollakiuria [Unknown]
  - Chills [Unknown]
  - Pyrexia [Unknown]
  - Malaise [Unknown]
  - Influenza [Unknown]
  - Serum ferritin increased [Unknown]
  - Haemoglobin decreased [Unknown]
